FAERS Safety Report 25079268 (Version 5)
Quarter: 2025Q3

REPORT INFORMATION
  Report Type: Spontaneous
  Country: CA (occurrence: CA)
  Receive Date: 20250314
  Receipt Date: 20250916
  Transmission Date: 20251021
  Serious: Yes (Other)
  Sender: CELLTRION
  Company Number: CA-PFIZER INC-202500011851

PATIENT

DRUGS (6)
  1. INFLECTRA [Suspect]
     Active Substance: INFLIXIMAB-DYYB
     Indication: Colitis ulcerative
     Dates: start: 20241207
  2. INFLECTRA [Suspect]
     Active Substance: INFLIXIMAB-DYYB
     Dates: start: 20241221
  3. INFLECTRA [Suspect]
     Active Substance: INFLIXIMAB-DYYB
     Dates: start: 20250116
  4. INFLECTRA [Suspect]
     Active Substance: INFLIXIMAB-DYYB
     Dates: start: 20250306
  5. INFLECTRA [Suspect]
     Active Substance: INFLIXIMAB-DYYB
     Dates: start: 20250502
  6. MESALAMINE [Concomitant]
     Active Substance: MESALAMINE

REACTIONS (16)
  - Condition aggravated [Not Recovered/Not Resolved]
  - Treatment noncompliance [Unknown]
  - Drug specific antibody [Unknown]
  - Haemorrhoids [Unknown]
  - Eye pruritus [Unknown]
  - Blood albumin decreased [Unknown]
  - Anaemia [Unknown]
  - Lymphocytosis [Unknown]
  - Anal fissure [Unknown]
  - Blood sodium decreased [Unknown]
  - Anion gap decreased [Unknown]
  - Alanine aminotransferase decreased [Unknown]
  - Weight decreased [Unknown]
  - Tachycardia [Unknown]
  - Hypotension [Unknown]
  - Off label use [Unknown]

NARRATIVE: CASE EVENT DATE: 20250101
